FAERS Safety Report 6488424-2 (Version None)
Quarter: 2009Q4

REPORT INFORMATION
  Report Type: 
  Country: None (occurrence: None)
  Receive Date: 20091210
  Receipt Date: 20091130
  Transmission Date: 20100525
  Serious: Yes (Hospitalization, Other)
  Sender: FDA-Public Use
  Company Number: US-BAXTER-2009BH018408

PATIENT
  Age: 55 Year
  Sex: Female

DRUGS (2)
  1. DIANEAL [Suspect]
     Indication: PERITONEAL DIALYSIS
     Route: 033
     Dates: end: 20090101
  2. DIANEAL [Suspect]
     Indication: PERITONEAL DIALYSIS
     Route: 033
     Dates: end: 20090101

REACTIONS (8)
  - BLOOD ALBUMIN DECREASED [None]
  - CONTUSION [None]
  - GAIT DISTURBANCE [None]
  - GANGRENE [None]
  - IMPAIRED HEALING [None]
  - NAUSEA [None]
  - PNEUMONIA [None]
  - VOMITING [None]
